FAERS Safety Report 9931337 (Version 1)
Quarter: 2014Q1

REPORT INFORMATION
  Report Type: Spontaneous
  Country: DE (occurrence: DE)
  Receive Date: 20140228
  Receipt Date: 20140228
  Transmission Date: 20141002
  Serious: Yes (Disabling, Other)
  Sender: FDA-Public Use
  Company Number: DE-RANBAXY-2014RR-78383

PATIENT
  Age: 75 Year
  Sex: Female

DRUGS (1)
  1. CIPRO BASICS 500MG FILMTABLETTEN [Suspect]
     Indication: BRONCHITIS
     Dosage: UNK
     Route: 065
     Dates: start: 201402, end: 201402

REACTIONS (5)
  - Asthenia [Unknown]
  - Vertigo [Unknown]
  - Coordination abnormal [Unknown]
  - Defaecation urgency [Unknown]
  - Micturition urgency [Unknown]
